FAERS Safety Report 6794558-5 (Version None)
Quarter: 2010Q2

REPORT INFORMATION
  Report Type: 
  Country: None (occurrence: None)
  Receive Date: 20100625
  Receipt Date: 20100621
  Transmission Date: 20101027
  Serious: Yes (Other)
  Sender: FDA-Public Use
  Company Number: JP-PFIZER INC-2010073689

PATIENT
  Sex: Female

DRUGS (1)
  1. NASANYL [Suspect]
     Indication: ENDOMETRIOSIS
     Dosage: UNK
     Dates: start: 20100501

REACTIONS (1)
  - THROMBOCYTOPENIC PURPURA [None]
